FAERS Safety Report 9763912 (Version 2)
Quarter: 2014Q1

REPORT INFORMATION
  Report Type: Spontaneous
  Country: US (occurrence: US)
  Receive Date: 20131216
  Receipt Date: 20140129
  Transmission Date: 20141002
  Serious: No
  Sender: FDA-Public Use
  Company Number: US-009507513-1312USA007112

PATIENT
  Age: 37 Year
  Sex: Female
  Weight: 54.42 kg

DRUGS (1)
  1. CLARITIN [Suspect]
     Indication: ALLERGIC RESPIRATORY SYMPTOM
     Dosage: 10 MG, QD
     Route: 048
     Dates: start: 20131015, end: 20131105

REACTIONS (1)
  - Drug ineffective [Unknown]
